FAERS Safety Report 9863720 (Version 1)
Quarter: 2014Q1

REPORT INFORMATION
  Report Type: Spontaneous
  Country: US (occurrence: US)
  Receive Date: 20140203
  Receipt Date: 20140203
  Transmission Date: 20141002
  Serious: Yes (Other)
  Sender: FDA-Public Use
  Company Number: PHHY2014US012581

PATIENT
  Sex: Male
  Weight: 1.69 kg

DRUGS (5)
  1. CICLOSPORIN [Suspect]
     Dosage: MATERNAL DOSE:125 MG, UNK
     Route: 064
  2. RANITIDINE [Suspect]
     Dosage: MATERNAL DOSE:150 MG, BID
     Route: 064
  3. PREDNISONE [Suspect]
     Dosage: MATERNAL DOSE:15 MG, EVERYDAY
     Route: 064
  4. RIOPAN [Suspect]
     Dosage: MATERNAL DOSE:30 ML, EVERY 4 HR
     Route: 064
  5. FERROUS SULFATE [Suspect]
     Dosage: MATERNAL DOSE:300 MG, TID
     Route: 064

REACTIONS (5)
  - Foetal growth restriction [Unknown]
  - Low birth weight baby [Unknown]
  - Head circumference abnormal [Unknown]
  - Premature baby [Unknown]
  - Foetal exposure during pregnancy [Unknown]
